FAERS Safety Report 20407846 (Version 1)
Quarter: 2022Q1

REPORT INFORMATION
  Report Type: Spontaneous
  Country: CN (occurrence: None)
  Receive Date: 20220201
  Receipt Date: 20220201
  Transmission Date: 20220424
  Serious: Yes (Other)
  Sender: FDA-Public Use
  Company Number: CN-ROCHE-3012717

PATIENT
  Age: 32 Year
  Sex: Female

DRUGS (15)
  1. HERCEPTIN [Suspect]
     Active Substance: TRASTUZUMAB
     Indication: Invasive ductal breast carcinoma
     Dosage: PCH
     Route: 065
     Dates: start: 20191207
  2. HERCEPTIN [Suspect]
     Active Substance: TRASTUZUMAB
     Dosage: PCH
     Route: 065
     Dates: start: 20200101
  3. HERCEPTIN [Suspect]
     Active Substance: TRASTUZUMAB
     Dosage: PCH
     Route: 065
     Dates: start: 20200214
  4. HERCEPTIN [Suspect]
     Active Substance: TRASTUZUMAB
     Dosage: PCH
     Route: 065
     Dates: start: 20200426
  5. KADCYLA [Concomitant]
     Active Substance: ADO-TRASTUZUMAB EMTANSINE
     Indication: Invasive ductal breast carcinoma
     Route: 065
     Dates: start: 20200817
  6. KADCYLA [Concomitant]
     Active Substance: ADO-TRASTUZUMAB EMTANSINE
     Route: 065
     Dates: start: 20201201
  7. PACLITAXEL [Concomitant]
     Active Substance: PACLITAXEL
     Indication: Invasive ductal breast carcinoma
     Dosage: PCH
     Route: 065
     Dates: start: 20191207
  8. PACLITAXEL [Concomitant]
     Active Substance: PACLITAXEL
     Dosage: PCH
     Route: 065
     Dates: start: 20200101
  9. PACLITAXEL [Concomitant]
     Active Substance: PACLITAXEL
     Dosage: PCH
     Route: 065
     Dates: start: 20200214
  10. PACLITAXEL [Concomitant]
     Active Substance: PACLITAXEL
     Dosage: PCH
     Route: 065
     Dates: start: 20200426
  11. CARBOPLATIN [Concomitant]
     Active Substance: CARBOPLATIN
     Indication: Invasive ductal breast carcinoma
     Dosage: PCH
     Route: 065
     Dates: start: 20191207
  12. CARBOPLATIN [Concomitant]
     Active Substance: CARBOPLATIN
     Dosage: PCH
     Route: 065
     Dates: start: 20200101
  13. CARBOPLATIN [Concomitant]
     Active Substance: CARBOPLATIN
     Dosage: PCH
     Route: 065
     Dates: start: 20200214
  14. CARBOPLATIN [Concomitant]
     Active Substance: CARBOPLATIN
     Dosage: PCH
     Route: 065
     Dates: start: 20200426
  15. TAMOXIFEN [Concomitant]
     Active Substance: TAMOXIFEN
     Route: 048
     Dates: start: 20210615

REACTIONS (1)
  - Myelosuppression [Unknown]
